FAERS Safety Report 4341856-0 (Version None)
Quarter: 2004Q2

REPORT INFORMATION
  Report Type: 
  Country: None (occurrence: None)
  Receive Date: 20040415
  Receipt Date: 20040330
  Transmission Date: 20050107
  Serious: Yes (Other)
  Sender: FDA-Public Use
  Company Number: JP_040402899

PATIENT
  Sex: Male
  Weight: 56 kg

DRUGS (2)
  1. GEMZAR [Suspect]
     Indication: PANCREATIC CARCINOMA
     Dosage: 1600 MG OTHER
     Route: 042
     Dates: start: 20031006, end: 20040308
  2. UFT [Concomitant]

REACTIONS (1)
  - JAUNDICE CHOLESTATIC [None]
